FAERS Safety Report 6477440-2 (Version None)
Quarter: 2009Q4

REPORT INFORMATION
  Report Type: 
  Country: None (occurrence: None)
  Receive Date: 20091207
  Receipt Date: 20091102
  Transmission Date: 20100525
  Serious: Yes (Death)
  Sender: FDA-Public Use
  Company Number: NZ-SANOFI-AVENTIS-2009SA000655

PATIENT

DRUGS (3)
  1. LEFLUNOMIDE [Suspect]
  2. METHOTREXATE [Suspect]
  3. PARACETAMOL [Suspect]

REACTIONS (1)
  - DEATH [None]
